FAERS Safety Report 9313304 (Version 1)
Quarter: 2013Q2

REPORT INFORMATION
  Report Type: Report from Study
  Country: US (occurrence: US)
  Receive Date: 20130528
  Receipt Date: 20130528
  Transmission Date: 20140414
  Serious: No
  Sender: FDA-Public Use
  Company Number: US-ABBOTT-13P-163-1051858-00

PATIENT
  Sex: Male
  Weight: 111.23 kg

DRUGS (3)
  1. ANDROGEL 1.62% [Suspect]
     Indication: BLOOD TESTOSTERONE DECREASED
     Dosage: 2 PUMPS
     Route: 061
     Dates: start: 201204, end: 201210
  2. ANDROGEL 1.62% [Suspect]
     Dosage: 4 PUMPS
     Route: 061
     Dates: start: 201210
  3. SINGULAIR [Concomitant]
     Indication: PRODUCT USED FOR UNKNOWN INDICATION

REACTIONS (1)
  - Urine flow decreased [Not Recovered/Not Resolved]
